FAERS Safety Report 8028549-3 (Version None)
Quarter: 2012Q1

REPORT INFORMATION
  Report Type: 
  Country: None (occurrence: None)
  Receive Date: 20120106
  Receipt Date: 20120105
  Transmission Date: 20120608
  Serious: Yes (Hospitalization, Other)
  Sender: FDA-Public Use
  Company Number: JP-ABBOTT-11P-087-0713944-00

PATIENT
  Sex: Male

DRUGS (11)
  1. EFAVIRENZ [Suspect]
     Indication: HIV INFECTION
     Dates: start: 20100128, end: 20100207
  2. METHYLPREDNISOLONE [Suspect]
     Indication: RASH
     Dates: start: 20100121, end: 20100121
  3. EPIVIR [Suspect]
     Indication: HIV INFECTION
     Route: 048
     Dates: start: 20100128, end: 20100207
  4. NORVIR [Suspect]
     Indication: HIV INFECTION
     Route: 048
     Dates: start: 20100108, end: 20100121
  5. ISENTRESS [Concomitant]
     Indication: HIV INFECTION
     Route: 048
     Dates: start: 20100208
  6. ZERIT [Suspect]
     Indication: HIV INFECTION
     Route: 048
     Dates: start: 20100128, end: 20100207
  7. BETAMETHASONE W/DEXCHLORPHENIRAMINE MALEATE [Suspect]
     Indication: RASH
     Dates: start: 20100118, end: 20100131
  8. TRUVADA [Suspect]
     Indication: HIV INFECTION
     Route: 048
     Dates: start: 20100108, end: 20100121
  9. LOPERAMIDE HCL [Concomitant]
     Indication: DIARRHOEA
     Dates: start: 20100108, end: 20100127
  10. TRUVADA [Suspect]
     Route: 048
     Dates: start: 20100208
  11. DARUNAVIR ETHANOLATE [Suspect]
     Indication: HIV INFECTION
     Route: 048
     Dates: start: 20100108, end: 20100121

REACTIONS (6)
  - RASH [None]
  - PYREXIA [None]
  - PLATELET COUNT DECREASED [None]
  - DIARRHOEA [None]
  - SALMONELLA SEPSIS [None]
  - HEPATIC FUNCTION ABNORMAL [None]
